FAERS Safety Report 25187444 (Version 1)
Quarter: 2025Q2

REPORT INFORMATION
  Report Type: Spontaneous
  Country: US (occurrence: US)
  Receive Date: 20250411
  Receipt Date: 20250411
  Transmission Date: 20250716
  Serious: Yes (Other)
  Sender: COOPERSURGICAL
  Company Number: US-COOPERSURGICAL, INC.-2025CPS002679

PATIENT
  Sex: Female
  Weight: 104.76 kg

DRUGS (3)
  1. PARAGARD T 380A [Suspect]
     Active Substance: COPPER
     Indication: Contraception
     Route: 015
     Dates: start: 2008
  2. LIPITOR [Concomitant]
     Active Substance: ATORVASTATIN CALCIUM
     Dates: start: 2012, end: 2013
  3. LISINOPRIL [Concomitant]
     Active Substance: LISINOPRIL
     Dates: start: 2012, end: 2013

REACTIONS (20)
  - Reproductive complication associated with device [Not Recovered/Not Resolved]
  - Infertility female [Not Recovered/Not Resolved]
  - Abortion induced [Recovered/Resolved]
  - Polyp [Unknown]
  - Uterine leiomyoma [Unknown]
  - Device breakage [Unknown]
  - Foreign body in reproductive tract [Unknown]
  - Complication of device removal [Unknown]
  - Embedded device [Unknown]
  - Pregnancy with contraceptive device [Recovered/Resolved]
  - Drug ineffective [Unknown]
  - Pelvic inflammatory disease [Unknown]
  - Anxiety [Not Recovered/Not Resolved]
  - Depression [Not Recovered/Not Resolved]
  - Menopause [Unknown]
  - Procedural pain [Unknown]
  - Abnormal uterine bleeding [Unknown]
  - Abdominal pain [Unknown]
  - Device dislocation [Unknown]
  - Pain [Unknown]

NARRATIVE: CASE EVENT DATE: 20090101
